FAERS Safety Report 4942866-2 (Version None)
Quarter: 2006Q1

REPORT INFORMATION
  Report Type: 
  Country: None (occurrence: None)
  Receive Date: 20060309
  Receipt Date: 20060224
  Transmission Date: 20060701
  Serious: Yes (Hospitalization)
  Sender: FDA-Public Use
  Company Number: 2006029505

PATIENT
  Age: 68 Year
  Sex: Male
  Weight: 69.5 kg

DRUGS (7)
  1. SUTENT [Suspect]
     Indication: HEPATIC NEOPLASM MALIGNANT
     Dosage: 400 MG (50 MG, ONCE DAILY INTERVAL:  4 WEEKS), ORAL
     Route: 048
     Dates: start: 20060216
  2. ALDACTONE [Concomitant]
  3. METFORMIN HCL [Concomitant]
  4. ZOCOR [Concomitant]
  5. XATRAL (ALFUZOSIN) [Concomitant]
  6. TRASICOR (OXPRENOLOL HYDROCHLORIDE) [Concomitant]
  7. POTASSIUM CHLORIDE [Concomitant]

REACTIONS (1)
  - APHASIA [None]
